FAERS Safety Report 5897972-5 (Version None)
Quarter: 2008Q3

REPORT INFORMATION
  Report Type: 
  Country: None (occurrence: None)
  Receive Date: 20080925
  Receipt Date: 20080919
  Transmission Date: 20090109
  Serious: Yes (Hospitalization)
  Sender: FDA-Public Use
  Company Number: B0538120A

PATIENT
  Age: 52 Year
  Sex: Male
  Weight: 65.7 kg

DRUGS (2)
  1. KIVEXA [Suspect]
     Indication: HIV INFECTION
  2. BLINDED TRIAL MEDICATION [Suspect]
     Indication: HIV INFECTION
     Route: 048
     Dates: start: 20080912

REACTIONS (5)
  - BLOOD BILIRUBIN INCREASED [None]
  - DEHYDRATION [None]
  - HEADACHE [None]
  - MYALGIA [None]
  - VOMITING [None]
